FAERS Safety Report 7134586-3 (Version None)
Quarter: 2010Q4

REPORT INFORMATION
  Report Type: 
  Country: None (occurrence: None)
  Receive Date: 20101203
  Receipt Date: 20101122
  Transmission Date: 20110411
  Serious: Yes (Other)
  Sender: FDA-Public Use
  Company Number: PHHY2010CA50285

PATIENT
  Age: 65 Year
  Sex: Male

DRUGS (12)
  1. DIOVAN [Suspect]
     Indication: HYPERTENSION
  2. ADALAT CC [Suspect]
     Indication: HYPERTENSION
     Dosage: 30 MG, ONE WEEK
     Route: 048
     Dates: start: 20070906
  3. ADALAT CC [Suspect]
     Dosage: 90 MG
     Route: 048
  4. ADALAT CC [Suspect]
     Dosage: UNK
     Route: 048
     Dates: start: 20091101
  5. ADALAT CC [Suspect]
     Dosage: 20 MG
     Route: 048
  6. CIPRO [Concomitant]
  7. SEPTRA [Concomitant]
     Route: 042
  8. AVELOX [Concomitant]
  9. AMOXICILLIN SODIUM W/CLAVULANATE POTASSIUM [Concomitant]
  10. LEVAQUIN [Concomitant]
  11. TEQUIN [Concomitant]
  12. DIURETICS [Concomitant]

REACTIONS (7)
  - ABDOMINAL DISTENSION [None]
  - CONDITION AGGRAVATED [None]
  - HYPERTENSION [None]
  - INSOMNIA [None]
  - NOCTURIA [None]
  - PROSTATITIS [None]
  - TINNITUS [None]
